FAERS Safety Report 21372758 (Version 3)
Quarter: 2022Q4

REPORT INFORMATION
  Report Type: Spontaneous
  Country: US (occurrence: US)
  Receive Date: 20220924
  Receipt Date: 20221012
  Transmission Date: 20230113
  Serious: No
  Sender: FDA-Public Use
  Company Number: US-JNJFOC-20220944774

PATIENT
  Age: 20 Year
  Sex: Female
  Weight: 51.7 kg

DRUGS (1)
  1. REMICADE [Suspect]
     Active Substance: INFLIXIMAB
     Indication: Colitis ulcerative
     Route: 041

REACTIONS (3)
  - Drug hypersensitivity [Unknown]
  - Psoriasis [Unknown]
  - Therapeutic product effect decreased [Unknown]
